FAERS Safety Report 11350127 (Version 1)
Quarter: 2015Q3

REPORT INFORMATION
  Report Type: Spontaneous
  Country: CN (occurrence: CN)
  Receive Date: 20150807
  Receipt Date: 20150807
  Transmission Date: 20151125
  Serious: Yes (Other)
  Sender: FDA-Public Use
  Company Number: CN-ASTELLAS-2015US027958

PATIENT
  Age: 5 Year
  Weight: 19 kg

DRUGS (1)
  1. PROGRAF [Suspect]
     Active Substance: TACROLIMUS\TACROLIMUS ANHYDROUS
     Indication: NEPHRITIS
     Dosage: 3 MG DAILY, THRICE DAILY
     Route: 048

REACTIONS (7)
  - Headache [Unknown]
  - Vomiting [Unknown]
  - Intracranial pressure increased [Unknown]
  - Off label use [Unknown]
  - Hypertension [Unknown]
  - Coma [Unknown]
  - Immunosuppressant drug level increased [Unknown]
